FAERS Safety Report 19856034 (Version 1)
Quarter: 2021Q3

REPORT INFORMATION
  Report Type: Spontaneous
  Country: GR (occurrence: GR)
  Receive Date: 20210920
  Receipt Date: 20210920
  Transmission Date: 20211014
  Serious: Yes (Other)
  Sender: FDA-Public Use
  Company Number: GR-MYLANLABS-2021M1062717

PATIENT
  Age: 73 Year
  Sex: Male

DRUGS (7)
  1. ETHAMBUTOL [Suspect]
     Active Substance: ETHAMBUTOL HYDROCHLORIDE
     Indication: MYCOBACTERIAL INFECTION
     Dosage: UNK
  2. RIFAMPICIN [Suspect]
     Active Substance: RIFAMPIN
     Indication: MYCOBACTERIAL INFECTION
     Dosage: UNK
  3. ISONIAZID. [Concomitant]
     Active Substance: ISONIAZID
     Dosage: UNK
     Route: 048
  4. AZITHROMYCIN ANHYDROUS. [Concomitant]
     Active Substance: AZITHROMYCIN ANHYDROUS
     Route: 042
  5. AZITHROMYCIN ANHYDROUS. [Suspect]
     Active Substance: AZITHROMYCIN ANHYDROUS
     Indication: MYCOBACTERIAL INFECTION
     Dosage: UNK
     Route: 048
  6. MOXIFLOXACIN. [Concomitant]
     Active Substance: MOXIFLOXACIN
     Dosage: UNK
  7. AMIKACIN. [Suspect]
     Active Substance: AMIKACIN
     Indication: MYCOBACTERIAL INFECTION
     Dosage: UNK
     Route: 030

REACTIONS (3)
  - Lung disorder [Recovering/Resolving]
  - Mycobacterial infection [Recovering/Resolving]
  - Condition aggravated [Recovering/Resolving]
